FAERS Safety Report 5216767-9 (Version None)
Quarter: 2007Q1

REPORT INFORMATION
  Report Type: 
  Country: None (occurrence: None)
  Receive Date: 20070118
  Receipt Date: 20070102
  Transmission Date: 20070707
  Serious: Yes (Life-Threatening, Other)
  Sender: FDA-Public Use
  Company Number: 2007RR-05049

PATIENT
  Age: 12 Year
  Sex: Female

DRUGS (4)
  1. ACETAMINOPHEN [Suspect]
     Indication: ABDOMINAL PAIN
     Dosage: 50 MG/KG, QD, INTRAVENOUS
     Route: 042
  2. MORPHINE [Suspect]
     Indication: ABDOMINAL PAIN
     Dosage: INTRAVENOUS
     Route: 042
  3. KETAMINE HCL [Concomitant]
  4. DICLOFENAC SODIUM [Concomitant]

REACTIONS (3)
  - DRUG INEFFECTIVE [None]
  - HALLUCINATION, VISUAL [None]
  - MEGACOLON [None]
